FAERS Safety Report 15560876 (Version 2)
Quarter: 2018Q4

REPORT INFORMATION
  Report Type: Spontaneous
  Country: US (occurrence: US)
  Receive Date: 20181029
  Receipt Date: 20181129
  Transmission Date: 20190205
  Serious: No
  Sender: FDA-Public Use
  Company Number: US-PFIZER INC-2018432963

PATIENT
  Age: 58 Year
  Sex: Female
  Weight: 63 kg

DRUGS (3)
  1. ESTRING [Suspect]
     Active Substance: ESTRADIOL
     Indication: HORMONE THERAPY
     Dosage: 2 MG (ONE RING), EVERY 3 MONTHS (EVERY 90 DAYS)
     Route: 067
     Dates: start: 2018, end: 20181004
  2. ESTRING [Suspect]
     Active Substance: ESTRADIOL
     Indication: VULVOVAGINAL PRURITUS
  3. ESTRING [Suspect]
     Active Substance: ESTRADIOL
     Indication: VULVOVAGINAL DRYNESS

REACTIONS (7)
  - Vulvovaginal discomfort [Unknown]
  - Mood swings [Not Recovered/Not Resolved]
  - Bronchitis [Unknown]
  - Malaise [Unknown]
  - Vulvovaginal swelling [Unknown]
  - Cough [Not Recovered/Not Resolved]
  - Product complaint [Unknown]

NARRATIVE: CASE EVENT DATE: 2018
